FAERS Safety Report 15367319 (Version 3)
Quarter: 2019Q2

REPORT INFORMATION
  Report Type: Report from Study
  Country: CA (occurrence: CA)
  Receive Date: 20180910
  Receipt Date: 20190410
  Transmission Date: 20190711
  Serious: Yes (Hospitalization, Other)
  Sender: FDA-Public Use
  Company Number: CA-JNJFOC-20180901028

PATIENT
  Age: 25 Year
  Sex: Female
  Weight: 44.5 kg

DRUGS (2)
  1. REMICADE [Suspect]
     Active Substance: INFLIXIMAB
     Indication: CROHN^S DISEASE
     Route: 042
  2. REMICADE [Suspect]
     Active Substance: INFLIXIMAB
     Indication: CROHN^S DISEASE
     Route: 042
     Dates: start: 20110822

REACTIONS (6)
  - Intestinal resection [Unknown]
  - Blood iron decreased [Recovered/Resolved]
  - Crohn^s disease [Recovered/Resolved]
  - Haemoglobin decreased [Recovered/Resolved]
  - Infusion related reaction [Unknown]
  - Pulmonary thrombosis [Recovered/Resolved]

NARRATIVE: CASE EVENT DATE: 20180807
